FAERS Safety Report 7139334-9 (Version None)
Quarter: 2010Q4

REPORT INFORMATION
  Report Type: 
  Country: None (occurrence: None)
  Receive Date: 20101206
  Receipt Date: 20101126
  Transmission Date: 20110411
  Serious: Yes (Hospitalization)
  Sender: FDA-Public Use
  Company Number: JP-ALLERGAN-1015497US

PATIENT
  Age: 69 Year
  Sex: Female

DRUGS (12)
  1. LUMIGAN [Suspect]
     Indication: OPEN ANGLE GLAUCOMA
     Dosage: 1 GTT, QD
     Route: 047
     Dates: start: 20100109
  2. CARTEOLOL HYDROCHLORIDE [Suspect]
     Indication: OPEN ANGLE GLAUCOMA
     Dosage: 1 GTT, QD
     Route: 047
     Dates: start: 20090404
  3. HYALURONATE SODIUM [Suspect]
     Indication: KERATOCONJUNCTIVITIS SICCA
     Dosage: 1 GTT, QID
     Route: 047
     Dates: start: 20090801
  4. ASPIRIN [Suspect]
     Indication: CEREBRAL INFARCTION
     Dosage: UNK
     Dates: start: 20080730
  5. FAMOTIDINE [Suspect]
     Indication: GASTRITIS
     Dosage: UNK
     Route: 048
     Dates: start: 20080730
  6. ALENDRONATE SODIUM [Suspect]
     Indication: OSTEOPOROSIS
     Dosage: UNK
     Route: 048
     Dates: start: 20090930
  7. NIFEDIPINE [Suspect]
     Indication: HYPERTENSION
     Route: 048
  8. BETAHISTINE MESILATE [Suspect]
     Indication: DIZZINESS
     Route: 048
  9. LOXOPROFEN SODIUM [Suspect]
     Indication: NECK PAIN
     Dosage: UNK
     Dates: start: 20070101
  10. NITRAZEPAM [Suspect]
     Indication: INSOMNIA
     Dosage: UNK
     Route: 048
     Dates: start: 20091021
  11. SIMETRIDE ANHYDROUS CAFFEINE [Suspect]
     Indication: HEADACHE
     Dosage: UNK
     Route: 048
     Dates: start: 20060101
  12. LACTOSE [Suspect]
     Indication: HEADACHE
     Dosage: UNK
     Route: 048
     Dates: start: 20060101

REACTIONS (4)
  - BLEPHARAL PIGMENTATION [None]
  - EYELASH THICKENING [None]
  - IRIS HYPERPIGMENTATION [None]
  - MYOCARDIAL INFARCTION [None]
